FAERS Safety Report 17653028 (Version 1)
Quarter: 2020Q2

REPORT INFORMATION
  Report Type: Spontaneous
  Country: US (occurrence: US)
  Receive Date: 20200409
  Receipt Date: 20200409
  Transmission Date: 20200713
  Serious: No
  Sender: FDA-Public Use
  Company Number: US-TEVA-2020-US-1220313

PATIENT

DRUGS (1)
  1. ESCITALOPRAM OXALATE TEVA [Suspect]
     Active Substance: ESCITALOPRAM OXALATE
     Route: 065
     Dates: start: 20200107, end: 20200120

REACTIONS (10)
  - Nausea [Unknown]
  - Chest pain [Unknown]
  - Vomiting [Unknown]
  - Abdominal pain [Unknown]
  - Insomnia [Unknown]
  - Photophobia [Unknown]
  - Anxiety [Unknown]
  - Product substitution issue [Unknown]
  - Diarrhoea [Unknown]
  - Hyperchlorhydria [Unknown]
